FAERS Safety Report 21816876 (Version 2)
Quarter: 2023Q1

REPORT INFORMATION
  Report Type: Spontaneous
  Country: US (occurrence: US)
  Receive Date: 20230104
  Receipt Date: 20230206
  Transmission Date: 20230418
  Serious: No
  Sender: FDA-Public Use
  Company Number: US-PFIZER INC-202201402915

PATIENT
  Age: 42 Year
  Sex: Female
  Weight: 92.971 kg

DRUGS (5)
  1. PAXLOVID [Suspect]
     Active Substance: NIRMATRELVIR\RITONAVIR
     Indication: COVID-19 treatment
     Dosage: [PF-07321332 300 MG]/[RITONAVIR 100 MG]; 2X/DAY
     Route: 048
     Dates: start: 20221221, end: 20221226
  2. HUMIRA [Concomitant]
     Active Substance: ADALIMUMAB
     Dosage: 1 DF, WEEKLY (1X EVERY SEVEN DAYS)
     Dates: start: 20181001
  3. FLOVENT [Concomitant]
     Active Substance: FLUTICASONE PROPIONATE
     Dosage: UNK, 2X/DAY (2 PUFFS 2X DAY)
     Dates: start: 20221222
  4. ALBUTEROL [Concomitant]
     Active Substance: ALBUTEROL
     Indication: Bronchitis
     Dosage: UNK, AS NEEDED
     Dates: start: 20221105
  5. ALBUTEROL [Concomitant]
     Active Substance: ALBUTEROL
     Indication: Sinusitis

REACTIONS (3)
  - Dysgeusia [Recovered/Resolved]
  - COVID-19 [Recovered/Resolved]
  - Disease recurrence [Recovered/Resolved]

NARRATIVE: CASE EVENT DATE: 20221221
